FAERS Safety Report 9119555 (Version 2)
Quarter: 2013Q1

REPORT INFORMATION
  Report Type: Report from Study
  Country: CA (occurrence: CA)
  Receive Date: 20130207
  Receipt Date: 20130305
  Transmission Date: 20140127
  Serious: Yes (Hospitalization, Other)
  Sender: FDA-Public Use
  Company Number: CA-ABBOTT-13P-028-1045107-00

PATIENT
  Age: 41 Year
  Sex: Male

DRUGS (1)
  1. HUMIRA PEN [Suspect]
     Indication: CROHN^S DISEASE
     Route: 058
     Dates: start: 20111230, end: 20111230

REACTIONS (7)
  - Local swelling [Unknown]
  - Purulent discharge [Unknown]
  - Proctalgia [Unknown]
  - Night sweats [Unknown]
  - Malaise [Unknown]
  - Anal abscess [Unknown]
  - Anal abscess [Unknown]
